FAERS Safety Report 17099321 (Version 1)
Quarter: 2019Q4

REPORT INFORMATION
  Report Type: Spontaneous
  Country: RO (occurrence: RO)
  Receive Date: 20191202
  Receipt Date: 20191202
  Transmission Date: 20200122
  Serious: Yes (Other)
  Sender: FDA-Public Use
  Company Number: RO-AMGEN-ROUSP2019198202

PATIENT
  Age: 55 Year
  Sex: Male
  Weight: 100 kg

DRUGS (29)
  1. NPLATE [Suspect]
     Active Substance: ROMIPLOSTIM
     Indication: BLOOD LOSS ANAEMIA
     Dosage: 1 MICROGRAM/KILOGRAM, QWK
     Route: 065
     Dates: start: 201602
  2. NPLATE [Suspect]
     Active Substance: ROMIPLOSTIM
     Dosage: 1 MICROGRAM/KILOGRAM, QWK
     Route: 065
  3. NPLATE [Suspect]
     Active Substance: ROMIPLOSTIM
     Dosage: 6 MICROGRAM/KILOGRAM
     Route: 065
  4. NPLATE [Suspect]
     Active Substance: ROMIPLOSTIM
     Dosage: 1 MICROGRAM/KILOGRAM
     Route: 065
  5. NPLATE [Suspect]
     Active Substance: ROMIPLOSTIM
     Dosage: 4 MICROGRAM/KILOGRAM
     Route: 065
  6. NPLATE [Suspect]
     Active Substance: ROMIPLOSTIM
     Dosage: 2 MICROGRAM/KILOGRAM
     Route: 065
  7. NPLATE [Suspect]
     Active Substance: ROMIPLOSTIM
     Dosage: 0.5 MICROGRAM/KILOGRAM, QWK
     Route: 065
     Dates: start: 2016
  8. NPLATE [Suspect]
     Active Substance: ROMIPLOSTIM
     Dosage: 1 MICROGRAM/KILOGRAM, QWK
     Route: 065
     Dates: start: 2016
  9. NPLATE [Suspect]
     Active Substance: ROMIPLOSTIM
     Dosage: 4 MICROGRAM/KILOGRAM
     Route: 065
  10. NPLATE [Suspect]
     Active Substance: ROMIPLOSTIM
     Dosage: 3 MICROGRAM/KILOGRAM
     Route: 065
  11. NPLATE [Suspect]
     Active Substance: ROMIPLOSTIM
     Dosage: 2 MICROGRAM/KILOGRAM
     Route: 065
  12. NPLATE [Suspect]
     Active Substance: ROMIPLOSTIM
     Dosage: 1.5 MICROGRAM/KILOGRAM
     Route: 065
  13. NPLATE [Suspect]
     Active Substance: ROMIPLOSTIM
     Dosage: 3 MICROGRAM/KILOGRAM
     Route: 065
  14. NPLATE [Suspect]
     Active Substance: ROMIPLOSTIM
     Dosage: 3 MICROGRAM/KILOGRAM
     Route: 065
  15. NPLATE [Suspect]
     Active Substance: ROMIPLOSTIM
     Dosage: 2.5 MICROGRAM/KILOGRAM
     Route: 065
  16. NPLATE [Suspect]
     Active Substance: ROMIPLOSTIM
     Dosage: 3 MICROGRAM/KILOGRAM
     Route: 065
  17. NPLATE [Suspect]
     Active Substance: ROMIPLOSTIM
     Dosage: 5 MICROGRAM/KILOGRAM
     Route: 065
  18. NPLATE [Suspect]
     Active Substance: ROMIPLOSTIM
     Dosage: 2.5 MICROGRAM/KILOGRAM
     Route: 065
  19. NPLATE [Suspect]
     Active Substance: ROMIPLOSTIM
     Dosage: 6 MICROGRAM/KILOGRAM
     Route: 065
  20. NPLATE [Suspect]
     Active Substance: ROMIPLOSTIM
     Dosage: 3 MICROGRAM/KILOGRAM
     Route: 065
  21. NPLATE [Suspect]
     Active Substance: ROMIPLOSTIM
     Dosage: 2 MICROGRAM/KILOGRAM
     Route: 065
  22. NPLATE [Suspect]
     Active Substance: ROMIPLOSTIM
     Dosage: 2 MICROGRAM/KILOGRAM
     Route: 065
  23. NPLATE [Suspect]
     Active Substance: ROMIPLOSTIM
     Dosage: 3 MICROGRAM/KILOGRAM
     Route: 065
  24. NPLATE [Suspect]
     Active Substance: ROMIPLOSTIM
     Dosage: 4 MICROGRAM/KILOGRAM
     Route: 065
  25. NPLATE [Suspect]
     Active Substance: ROMIPLOSTIM
     Dosage: 1 MICROGRAM/KILOGRAM
     Route: 065
  26. NPLATE [Suspect]
     Active Substance: ROMIPLOSTIM
     Dosage: 1 MICROGRAM/KILOGRAM, Q2WK
     Route: 065
     Dates: end: 201807
  27. NPLATE [Suspect]
     Active Substance: ROMIPLOSTIM
     Dosage: 1 MICROGRAM/KILOGRAM, Q2WK
     Route: 065
     Dates: start: 2016
  28. NPLATE [Suspect]
     Active Substance: ROMIPLOSTIM
     Dosage: 3 MICROGRAM/KILOGRAM
     Route: 065
  29. NPLATE [Suspect]
     Active Substance: ROMIPLOSTIM
     Dosage: 2 MICROGRAM/KILOGRAM
     Route: 065

REACTIONS (2)
  - B-cell lymphoma [Unknown]
  - Off label use [Unknown]

NARRATIVE: CASE EVENT DATE: 201602
